FAERS Safety Report 19833659 (Version 4)
Quarter: 2022Q1

REPORT INFORMATION
  Report Type: Report from Study
  Country: US (occurrence: US)
  Receive Date: 20210915
  Receipt Date: 20220106
  Transmission Date: 20220423
  Serious: No
  Sender: FDA-Public Use
  Company Number: NVSC2021US209066

PATIENT
  Sex: Female

DRUGS (2)
  1. COSENTYX [Suspect]
     Active Substance: SECUKINUMAB
     Indication: Ankylosing spondylitis
     Dosage: 150 MG, QW
     Route: 058
  2. COSENTYX [Suspect]
     Active Substance: SECUKINUMAB
     Route: 058

REACTIONS (10)
  - Injection site bruising [Unknown]
  - Dizziness [Unknown]
  - Injection site pain [Unknown]
  - Abdominal pain upper [Unknown]
  - Blood urine present [Unknown]
  - Back pain [Unknown]
  - Lymphadenopathy [Unknown]
  - Gait disturbance [Unknown]
  - Axillary pain [Unknown]
  - Drug ineffective [Unknown]
